FAERS Safety Report 18283506 (Version 2)
Quarter: 2020Q3

REPORT INFORMATION
  Report Type: Report from Study
  Country: PK (occurrence: PK)
  Receive Date: 20200918
  Receipt Date: 20200929
  Transmission Date: 20201103
  Serious: Yes (Death)
  Sender: FDA-Public Use
  Company Number: NVSC2020PK254875

PATIENT
  Age: 54 Year
  Sex: Male

DRUGS (5)
  1. DIAMICRON MR [Concomitant]
     Active Substance: GLICLAZIDE
     Indication: DIABETES MELLITUS
     Dosage: 60 MG, QD
     Route: 048
     Dates: start: 20180302
  2. ASCARD [Concomitant]
     Indication: CEREBROVASCULAR ACCIDENT
     Dosage: 75 MG, 1 HS
     Route: 048
     Dates: start: 20180302
  3. SELANZ [Concomitant]
     Indication: ABDOMINAL DISCOMFORT
     Dosage: 30 MG, QD
     Route: 048
     Dates: start: 20180302
  4. LIPIVASTIN [Concomitant]
     Indication: HYPERLIPIDAEMIA
     Dosage: 20 MG, QD
     Route: 048
     Dates: start: 20180302
  5. EXFORGE HCT [Suspect]
     Active Substance: AMLODIPINE BESYLATE\HYDROCHLOROTHIAZIDE\VALSARTAN
     Indication: HYPERTENSION
     Dosage: 1 DF, QD (160/12.5/10 MG)
     Route: 048
     Dates: start: 20180302

REACTIONS (8)
  - Chest discomfort [Fatal]
  - Pneumonia [Fatal]
  - Wheezing [Fatal]
  - Fatigue [Fatal]
  - Sepsis [Fatal]
  - Crepitations [Fatal]
  - Pyrexia [Fatal]
  - Malaise [Fatal]

NARRATIVE: CASE EVENT DATE: 20200125
